FAERS Safety Report 5177095-3 (Version None)
Quarter: 2006Q4

REPORT INFORMATION
  Report Type: 
  Country: None (occurrence: None)
  Receive Date: 20061207
  Receipt Date: 20061127
  Transmission Date: 20070319
  Serious: Yes (Hospitalization)
  Sender: FDA-Public Use
  Company Number: 2006146283

PATIENT
  Age: 19 Year
  Sex: Male
  Weight: 50 kg

DRUGS (12)
  1. VFEND [Suspect]
     Indication: ASPERGILLOSIS
     Dosage: 400 MG (200 MG, 2 IN 1 D), ORAL
     Route: 048
     Dates: start: 20060802, end: 20060802
  2. FLUCONAZOLE [Suspect]
     Indication: CANDIDIASIS
     Dosage: 100 MG, INTRAVENOUS
     Route: 042
     Dates: start: 20060724, end: 20060731
  3. FLUCONAZOLE [Suspect]
     Indication: CANDIDIASIS
     Dosage: ORAL
     Route: 048
     Dates: start: 20060801, end: 20060810
  4. CELLCEPT [Suspect]
     Indication: LUNG TRANSPLANT
     Dosage: 500 MG (250 MG, 2 IN 1 D)
     Dates: end: 20060823
  5. CYCLOSPORINE [Suspect]
     Indication: LUNG TRANSPLANT
     Dosage: INTRAVENOUS
     Route: 042
  6. CEFTAZIDIME PENTAHYDRATE [Concomitant]
  7. CIPROFLOXACIN HCL [Concomitant]
  8. ORBENIN CAP [Concomitant]
  9. ZOFRAN [Concomitant]
  10. ERYTHROMYCIN LACTOBIONATE [Concomitant]
  11. VALACYCLOVIR HCL [Concomitant]
  12. EPOETIN BETA [Concomitant]

REACTIONS (3)
  - CONDITION AGGRAVATED [None]
  - HEPATIC FAILURE [None]
  - RENAL FAILURE [None]
